FAERS Safety Report 9849089 (Version 1)
Quarter: 2014Q1

REPORT INFORMATION
  Report Type: Spontaneous
  Country: DE (occurrence: DE)
  Receive Date: 20140128
  Receipt Date: 20140128
  Transmission Date: 20141002
  Serious: Yes (Other)
  Sender: FDA-Public Use
  Company Number: PHHY2014DE007701

PATIENT
  Age: 45 Year
  Sex: Male

DRUGS (6)
  1. DOXORUBICIN [Suspect]
     Indication: PLASMABLASTIC LYMPHOMA
  2. PREDNISONE [Suspect]
     Indication: PLASMABLASTIC LYMPHOMA
  3. VINCRISTINE [Suspect]
     Indication: PLASMABLASTIC LYMPHOMA
  4. CYCLOPHOSPHAMIDE [Suspect]
     Indication: PLASMABLASTIC LYMPHOMA
  5. BORTEZOMIB [Suspect]
     Indication: PLASMABLASTIC LYMPHOMA
     Dosage: 1.3 MG/M2, UNK
     Route: 042
  6. GRANULOCYTE COLONY-STIMULATING FACTOR NOS [Concomitant]

REACTIONS (2)
  - Neuropathy peripheral [Unknown]
  - Leukopenia [Unknown]
